FAERS Safety Report 5854831-1 (Version None)
Quarter: 2008Q3

REPORT INFORMATION
  Report Type: 
  Country: None (occurrence: None)
  Receive Date: 20080822
  Receipt Date: 20080211
  Transmission Date: 20090109
  Serious: No
  Sender: FDA-Public Use
  Company Number: US-ABBOTT-08P-163-0438052-00

PATIENT
  Sex: Female

DRUGS (5)
  1. SYNTHROID [Suspect]
     Indication: HYPOTHYROIDISM
     Route: 048
     Dates: start: 20080201, end: 20080212
  2. QUETIAPINE [Concomitant]
     Indication: BIPOLAR DISORDER
     Route: 048
  3. BENZTROPINE MESYLATE [Concomitant]
     Indication: BIPOLAR DISORDER
  4. UNKNOWN PSYCHOTHERAPEUTIC [Concomitant]
     Indication: BIPOLAR DISORDER
  5. VITAMIN POWDER [Concomitant]
     Indication: MEDICAL DIET
     Route: 048

REACTIONS (3)
  - HYPOAESTHESIA [None]
  - MUSCULAR WEAKNESS [None]
  - PAIN IN EXTREMITY [None]
